FAERS Safety Report 7619698-X (Version None)
Quarter: 2011Q3

REPORT INFORMATION
  Report Type: 
  Country: None (occurrence: None)
  Receive Date: 20110719
  Receipt Date: 20110711
  Transmission Date: 20111222
  Serious: No
  Sender: FDA-Public Use
  Company Number: US-B.I. PHARMACEUTICALS,INC./RIDGEFIELD-2011-BP-12754BP

PATIENT
  Sex: Female
  Weight: 99.34 kg

DRUGS (11)
  1. TRICOR [Concomitant]
     Indication: BLOOD CHOLESTEROL ABNORMAL
     Dosage: 145 MG
     Route: 048
  2. SYNTHROID [Concomitant]
     Indication: THYROID DISORDER
     Dosage: 0.075 MG
     Route: 048
  3. VISIVITE [Concomitant]
  4. PRADAXA [Suspect]
     Indication: ATRIAL FIBRILLATION
     Dosage: 300 MG
     Route: 048
     Dates: start: 20101101
  5. LIPITOR [Concomitant]
     Indication: BLOOD CHOLESTEROL ABNORMAL
     Dosage: 40 MG
     Route: 048
  6. ALPHAGAN [Concomitant]
     Dosage: 30 ML
  7. PRADAXA [Suspect]
     Indication: ANTICOAGULANT THERAPY
  8. ACTOS [Concomitant]
     Indication: DIABETES MELLITUS
     Dosage: 15 MG
     Route: 048
     Dates: start: 20100101
  9. TEMAZEPAM [Concomitant]
  10. HYDROCHLOROTHIAZIDE [Concomitant]
     Indication: HYPERTENSION
     Dosage: 12.5 MG
     Route: 048
  11. LOSARTAN [Concomitant]
     Indication: HYPERTENSION
     Dosage: 100 MG
     Route: 048

REACTIONS (4)
  - GAIT DISTURBANCE [None]
  - ARTHRALGIA [None]
  - SYNOVIAL RUPTURE [None]
  - ARTHRITIS [None]
